FAERS Safety Report 4956495-8 (Version None)
Quarter: 2006Q1

REPORT INFORMATION
  Report Type: 
  Country: None (occurrence: None)
  Receive Date: 20060329
  Receipt Date: 20050928
  Transmission Date: 20060701
  Serious: Yes (Death, Hospitalization)
  Sender: FDA-Public Use
  Company Number: US-MERCK-0509USA04945

PATIENT
  Age: 61 Year
  Sex: Female
  Weight: 41 kg

DRUGS (21)
  1. VIOXX [Suspect]
     Indication: ARTHRITIS
     Route: 048
     Dates: start: 20000307, end: 20020414
  2. PAXIL [Concomitant]
     Route: 048
  3. ZANAFLEX [Concomitant]
     Route: 048
  4. PREVACID [Concomitant]
     Route: 048
  5. TRIMOX [Concomitant]
     Route: 048
  6. MYTUSSIN [Concomitant]
     Route: 065
  7. AMITRIPTYLINE HYDROCHLORIDE [Concomitant]
     Route: 048
  8. ENULOSE [Concomitant]
     Route: 048
  9. PROPOXYPHENE HYDROCHLORIDE AND ACETAMINOPHEN [Concomitant]
     Route: 065
  10. PHENYTOIN [Concomitant]
     Route: 048
  11. ACTONEL [Concomitant]
     Route: 048
  12. FOSAMAX [Concomitant]
     Route: 048
  13. WARFARIN SODIUM [Concomitant]
     Route: 048
  14. EVISTA [Concomitant]
     Route: 048
  15. DOXYCYCLINE [Concomitant]
     Route: 065
  16. BACLOFEN [Concomitant]
     Route: 048
  17. DIAZEPAM [Concomitant]
     Route: 048
  18. METHOCARBAMOL [Concomitant]
     Route: 048
  19. PRILOSEC [Concomitant]
     Route: 048
  20. ATENOLOL [Concomitant]
     Route: 048
  21. DUPHALAC [Concomitant]
     Route: 048

REACTIONS (7)
  - ARTHRITIS [None]
  - GASTRIC OPERATION [None]
  - OESOPHAGEAL STENOSIS [None]
  - OESOPHAGITIS [None]
  - POLYTRAUMATISM [None]
  - ULCER [None]
  - UPPER GASTROINTESTINAL HAEMORRHAGE [None]
